FAERS Safety Report 18336658 (Version 3)
Quarter: 2020Q4

REPORT INFORMATION
  Report Type: Report from Study
  Country: GB (occurrence: GB)
  Receive Date: 20201001
  Receipt Date: 20201204
  Transmission Date: 20210113
  Serious: Yes (Other)
  Sender: FDA-Public Use
  Company Number: GB-EXELIXIS-XL18420033343

PATIENT
  Age: 63 Year
  Sex: Female
  Weight: 61.5 kg

DRUGS (4)
  1. LEVOTHYROXINE. [Concomitant]
     Active Substance: LEVOTHYROXINE
  2. DALTEPARIN [Concomitant]
     Active Substance: DALTEPARIN
  3. XL184 [Suspect]
     Active Substance: CABOZANTINIB
     Indication: HEPATOCELLULAR CARCINOMA
     Dosage: 60 MG, QD
     Route: 048
     Dates: start: 20200211
  4. XL184 [Suspect]
     Active Substance: CABOZANTINIB
     Dosage: 40 MG, QOD
     Route: 048
     Dates: end: 20200925

REACTIONS (1)
  - Intracardiac thrombus [Not Recovered/Not Resolved]

NARRATIVE: CASE EVENT DATE: 20200924
